FAERS Safety Report 10853376 (Version 2)
Quarter: 2015Q2

REPORT INFORMATION
  Report Type: Report from Study
  Country: US (occurrence: US)
  Receive Date: 20150223
  Receipt Date: 20150407
  Transmission Date: 20150821
  Serious: Yes (Other)
  Sender: FDA-Public Use
  Company Number: US-AMGEN-USASL2015016054

PATIENT
  Age: 56 Year
  Sex: Female
  Weight: 147.85 kg

DRUGS (19)
  1. ENBREL [Suspect]
     Active Substance: ETANERCEPT
     Indication: RHEUMATOID ARTHRITIS
     Dosage: 50 MG, QWK
     Route: 058
     Dates: start: 201011
  2. KETOCONAZOLE. [Concomitant]
     Active Substance: KETOCONAZOLE
     Dosage: 2 %, BID
     Route: 061
     Dates: start: 20101101
  3. OMEPRAZOLE. [Concomitant]
     Active Substance: OMEPRAZOLE
     Dosage: 1 UNK, UNK
     Dates: start: 20150106
  4. SILVER SULFADIAZINE. [Concomitant]
     Active Substance: SILVER SULFADIAZINE
     Dosage: UNK UNK, BID
     Route: 061
     Dates: start: 20141120
  5. LOVASTAN [Concomitant]
     Dosage: 40 MG, QD
     Route: 048
     Dates: start: 20100104
  6. VITAMIN E                          /00110501/ [Concomitant]
     Dosage: 400 UNK, EVER MORNING
     Route: 048
     Dates: start: 20050418
  7. LEVOTHYROXINE SODIUM. [Concomitant]
     Active Substance: LEVOTHYROXINE SODIUM
     Dosage: 100 MUG, QD
     Route: 048
     Dates: start: 20150302
  8. RISPERIDONE. [Concomitant]
     Active Substance: RISPERIDONE
     Dosage: 4 MG, AT BEDTIME
     Route: 048
  9. METFORMIN HYDROCHLORIDE. [Concomitant]
     Active Substance: METFORMIN HYDROCHLORIDE
     Dosage: 1000 MG, BID
     Route: 048
     Dates: start: 20100412
  10. LISINOPRIL AND HYDROCHLOROTHIAZIDE [Concomitant]
     Active Substance: HYDROCHLOROTHIAZIDE\LISINOPRIL
     Dosage: 20-25 MG
     Route: 048
     Dates: start: 20091010
  11. GLIPIZIDE. [Concomitant]
     Active Substance: GLIPIZIDE
     Dosage: 10 MG, 24 HOURS
     Route: 048
     Dates: start: 20110208
  12. LETROZOLE. [Concomitant]
     Active Substance: LETROZOLE
     Dosage: 2.5 MG, QD
     Route: 048
  13. MELOXICAM. [Concomitant]
     Active Substance: MELOXICAM
     Dosage: 15 MG, DAILY
     Route: 048
     Dates: start: 20140904
  14. VITAMIN D                          /00107901/ [Concomitant]
     Active Substance: ERGOCALCIFEROL
     Dosage: 1 UNK, EVERY DAY
     Route: 048
  15. ENBREL [Suspect]
     Active Substance: ETANERCEPT
     Indication: PSORIATIC ARTHROPATHY
  16. CENTRUM                            /07419501/ [Concomitant]
     Dosage: 1TABLET DAILY
  17. QUININE SULFATE. [Concomitant]
     Active Substance: QUININE SULFATE
     Dosage: UNK
  18. FLUTICASONE PROPIONATE. [Concomitant]
     Active Substance: FLUTICASONE PROPIONATE
     Dosage: 50 MUG, DAILY
     Dates: start: 20150202
  19. FOLIC ACID. [Concomitant]
     Active Substance: FOLIC ACID
     Dosage: 1 UNK, DAILY
     Dates: start: 20051107

REACTIONS (13)
  - Weight decreased [Unknown]
  - Breast cancer metastatic [Not Recovered/Not Resolved]
  - Hepatomegaly [Unknown]
  - Nasopharyngitis [Not Recovered/Not Resolved]
  - Haemangioma of spleen [Unknown]
  - Blood glucose increased [Unknown]
  - Presyncope [Recovered/Resolved]
  - Epistaxis [Not Recovered/Not Resolved]
  - Pyrexia [Not Recovered/Not Resolved]
  - Ear infection [Not Recovered/Not Resolved]
  - Hypertension [Recovered/Resolved]
  - Sinus disorder [Not Recovered/Not Resolved]
  - Nausea [Not Recovered/Not Resolved]

NARRATIVE: CASE EVENT DATE: 20150120
